FAERS Safety Report 5306058-X (Version None)
Quarter: 2007Q2

REPORT INFORMATION
  Report Type: 
  Country: None (occurrence: None)
  Receive Date: 20070424
  Receipt Date: 20060509
  Transmission Date: 20071010
  Serious: No
  Sender: FDA-Public Use
  Company Number: US-BRISTOL-MYERS SQUIBB COMPANY-13372529

PATIENT
  Age: 74 Year
  Sex: Male
  Weight: 89 kg

DRUGS (2)
  1. HYDREA [Suspect]
     Indication: POLYCYTHAEMIA
     Route: 048
     Dates: start: 20051001
  2. PROSCAR [Concomitant]

REACTIONS (3)
  - FATIGUE [None]
  - INCREASED TENDENCY TO BRUISE [None]
  - RASH [None]
